FAERS Safety Report 4535485-3 (Version None)
Quarter: 2004Q4

REPORT INFORMATION
  Report Type: 
  Country: None (occurrence: None)
  Receive Date: 20041222
  Receipt Date: 20041116
  Transmission Date: 20050328
  Serious: Yes (Hospitalization)
  Sender: FDA-Public Use
  Company Number: US-MERCK-0411USA02837

PATIENT
  Sex: Female

DRUGS (4)
  1. VIOXX [Suspect]
     Indication: ARTHRITIS
     Route: 048
     Dates: start: 20000301, end: 20000801
  2. VIOXX [Suspect]
     Indication: ARTHRALGIA
     Route: 048
     Dates: start: 20000301, end: 20000801
  3. NORVASC [Concomitant]
     Route: 065
  4. METOPROLOL [Concomitant]
     Route: 065

REACTIONS (2)
  - ARTHROPATHY [None]
  - ATRIAL FIBRILLATION [None]
